FAERS Safety Report 25235197 (Version 1)
Quarter: 2025Q2

REPORT INFORMATION
  Report Type: Spontaneous
  Country: CA (occurrence: CA)
  Receive Date: 20250424
  Receipt Date: 20250424
  Transmission Date: 20250717
  Serious: Yes (Other)
  Sender: ORGANON
  Company Number: CA-ORGANON-O2504CAN002371

PATIENT
  Age: 57 Year
  Sex: Male

DRUGS (7)
  1. REMERON [Suspect]
     Active Substance: MIRTAZAPINE
     Indication: Antipsychotic therapy
     Route: 065
  2. ARIPIPRAZOLE [Suspect]
     Active Substance: ARIPIPRAZOLE
     Indication: Antipsychotic therapy
     Route: 065
  3. BUPRENORPHINE\NALOXONE [Suspect]
     Active Substance: BUPRENORPHINE\NALOXONE
     Indication: Back pain
     Route: 065
  4. CITALOPRAM [Suspect]
     Active Substance: CITALOPRAM
     Indication: Antipsychotic therapy
     Route: 065
  5. DULOXETINE [Suspect]
     Active Substance: DULOXETINE
     Indication: Antipsychotic therapy
     Route: 065
  6. QUETIAPINE [Suspect]
     Active Substance: QUETIAPINE
     Indication: Antipsychotic therapy
     Route: 065
  7. ZOPICLONE [Suspect]
     Active Substance: ZOPICLONE
     Indication: Antipsychotic therapy
     Route: 065

REACTIONS (5)
  - Acute kidney injury [Recovered/Resolved]
  - Delirium [Recovered/Resolved]
  - Dementia [Recovered/Resolved]
  - Rhabdomyolysis [Recovered/Resolved]
  - Overdose [Recovered/Resolved]
